FAERS Safety Report 4600141-X (Version None)
Quarter: 2005Q1

REPORT INFORMATION
  Report Type: 
  Country: None (occurrence: None)
  Receive Date: 20050307
  Receipt Date: 20050302
  Transmission Date: 20050727
  Serious: Yes (Hospitalization)
  Sender: FDA-Public Use
  Company Number: 05-03-0329

PATIENT
  Age: 79 Year
  Sex: Male

DRUGS (4)
  1. METHOCARBAMOL + ASPIRIN - IPI TABLET [Suspect]
     Indication: ANTIPLATELET THERAPY
     Dosage: 75MG OD ORAL
     Route: 048
     Dates: start: 20020101, end: 20050118
  2. IBUPROFEN [Suspect]
     Indication: PAIN
     Dosage: 400MG TDS ORAL
     Route: 048
     Dates: start: 20050104, end: 20050118
  3. PARACETAMOL [Concomitant]
  4. NIFEDIPINE [Concomitant]

REACTIONS (2)
  - FALL [None]
  - GASTRIC ULCER PERFORATION [None]
